FAERS Safety Report 18259240 (Version 2)
Quarter: 2020Q3

REPORT INFORMATION
  Report Type: Report from Study
  Country: BR (occurrence: BR)
  Receive Date: 20200911
  Receipt Date: 20200924
  Transmission Date: 20201103
  Serious: Yes (Death)
  Sender: FDA-Public Use
  Company Number: NVSC2020BR248937

PATIENT
  Age: 72 Year
  Sex: Male

DRUGS (1)
  1. REVOLADE [Suspect]
     Active Substance: ELTROMBOPAG
     Indication: IMMUNE THROMBOCYTOPENIA
     Dosage: 75 MG, QD
     Route: 048
     Dates: start: 202005

REACTIONS (4)
  - Dyslipidaemia [Unknown]
  - Obesity [Unknown]
  - Cerebrovascular accident [Fatal]
  - Insulin resistance [Unknown]
